FAERS Safety Report 5963538-1 (Version None)
Quarter: 2008Q4

REPORT INFORMATION
  Report Type: 
  Country: None (occurrence: None)
  Receive Date: 20081120
  Receipt Date: 20081110
  Transmission Date: 20090506
  Serious: Yes (Other)
  Sender: FDA-Public Use
  Company Number: 2008AP003093

PATIENT
  Age: 71 Year
  Sex: Male

DRUGS (1)
  1. METFORMIN HCL [Suspect]
     Indication: BLOOD GLUCOSE ABNORMAL
     Dosage: 500 MG BID PO
     Route: 048

REACTIONS (4)
  - AGEUSIA [None]
  - ANOSMIA [None]
  - FALL [None]
  - HEAD INJURY [None]
